FAERS Safety Report 6582090-3 (Version None)
Quarter: 2010Q1

REPORT INFORMATION
  Report Type: 
  Country: None (occurrence: None)
  Receive Date: 20100216
  Receipt Date: 20100211
  Transmission Date: 20100710
  Serious: Yes (Hospitalization)
  Sender: FDA-Public Use
  Company Number: US-BIOGENIDEC-2009BI010440

PATIENT
  Age: 69 Year
  Sex: Male

DRUGS (2)
  1. AVONEX [Suspect]
     Indication: MULTIPLE SCLEROSIS
     Route: 030
     Dates: start: 20040219
  2. AVONEX [Suspect]
     Route: 030

REACTIONS (4)
  - CEREBROVASCULAR ACCIDENT [None]
  - OSTEOMYELITIS [None]
  - PNEUMONIA [None]
  - SCIATICA [None]
